FAERS Safety Report 6373351-1 (Version None)
Quarter: 2009Q3

REPORT INFORMATION
  Report Type: 
  Country: None (occurrence: None)
  Receive Date: 20090924
  Receipt Date: 20090401
  Transmission Date: 20100115
  Serious: Yes (Hospitalization)
  Sender: FDA-Public Use
  Company Number: US-ASTRAZENECA-2009UW08251

PATIENT
  Age: 28 Year
  Sex: Male

DRUGS (4)
  1. SEROQUEL [Suspect]
     Indication: BIPOLAR DISORDER
     Route: 048
  2. METHADONE HCL [Concomitant]
  3. CELEXA [Concomitant]
     Route: 048
  4. RISPERDAL [Concomitant]
     Route: 048

REACTIONS (2)
  - PRIAPISM [None]
  - SUICIDE ATTEMPT [None]
